FAERS Safety Report 8534575-8 (Version None)
Quarter: 2012Q3

REPORT INFORMATION
  Report Type: 
  Country: None (occurrence: None)
  Receive Date: 20120724
  Receipt Date: 20120712
  Transmission Date: 20120928
  Serious: Yes (Hospitalization, Other)
  Sender: FDA-Public Use
  Company Number: US-009507513-1202USA02279

PATIENT

DRUGS (11)
  1. PREMARIN [Concomitant]
     Dosage: 1.25 MG, UNK
     Route: 048
  2. FOSAMAX [Suspect]
     Indication: OSTEOPOROSIS
     Dosage: 10 MG, UNK
     Route: 048
     Dates: start: 19980203, end: 20001001
  3. FOSAMAX [Suspect]
     Dosage: 70 MG, QW
     Route: 048
     Dates: start: 20001001, end: 20080301
  4. ALENDRONATE SODIUM [Suspect]
     Indication: OSTEOPOROSIS
     Dosage: 70 MG, UNK
     Route: 048
     Dates: start: 20081031, end: 20110201
  5. ESTROGENS (UNSPECIFIED) [Concomitant]
  6. CALCIUM (UNSPECIFIED) (+) VITAMIN D (UNSPECIFIED) [Concomitant]
     Dosage: 600/2800
     Route: 048
     Dates: start: 19900101
  7. MK-9278 [Concomitant]
     Dosage: UNK UNK, QD
     Route: 048
     Dates: start: 20000101
  8. FOSAMAX [Suspect]
     Dosage: 70 MG, QW
     Route: 048
     Dates: start: 20080419, end: 20080630
  9. LAMICTAL [Concomitant]
     Indication: OSTEOPENIA
     Route: 048
     Dates: start: 20030101, end: 20090101
  10. FOSAMAX [Suspect]
     Indication: OSTEOPENIA
     Dosage: 70 MG, QW
     Route: 048
     Dates: start: 20080419, end: 20110301
  11. ORUDIS [Concomitant]
     Indication: MUSCLE STRAIN

REACTIONS (68)
  - PELVIC FRACTURE [None]
  - BUNION [None]
  - URINARY INCONTINENCE [None]
  - PLEURITIC PAIN [None]
  - ATRIOVENTRICULAR BLOCK FIRST DEGREE [None]
  - FALL [None]
  - HEAD INJURY [None]
  - BALANCE DISORDER [None]
  - GOITRE [None]
  - CEREBROVASCULAR ACCIDENT [None]
  - BRAIN OPERATION [None]
  - STRESS URINARY INCONTINENCE [None]
  - LOSS OF CONSCIOUSNESS [None]
  - FACET JOINT SYNDROME [None]
  - CEREBRAL SMALL VESSEL ISCHAEMIC DISEASE [None]
  - BLOOD ALKALINE PHOSPHATASE INCREASED [None]
  - BURSITIS [None]
  - MUSCLE SPASMS [None]
  - HEADACHE [None]
  - TONSILLECTOMY [None]
  - RHINITIS [None]
  - CHILLS [None]
  - ECCHYMOSIS [None]
  - CEREBRAL ATROPHY [None]
  - BACTERIAL TEST POSITIVE [None]
  - CARTILAGE INJURY [None]
  - INFLAMMATION [None]
  - NERVOUSNESS [None]
  - OEDEMA PERIPHERAL [None]
  - BLOOD PRESSURE [None]
  - DEPRESSION [None]
  - TENDON INJURY [None]
  - VAGINISMUS [None]
  - CARDIAC MURMUR [None]
  - HYPONATRAEMIA [None]
  - FRACTURED SACRUM [None]
  - EPILEPSY [None]
  - RECTOCELE [None]
  - BLOOD CHOLESTEROL INCREASED [None]
  - THERMAL BURN [None]
  - RADICULITIS LUMBOSACRAL [None]
  - LIGAMENT SPRAIN [None]
  - ROAD TRAFFIC ACCIDENT [None]
  - BONE METABOLISM DISORDER [None]
  - PERIARTHRITIS [None]
  - BLOOD CALCIUM ABNORMAL [None]
  - FEMUR FRACTURE [None]
  - HYSTERECTOMY [None]
  - ULNA FRACTURE [None]
  - NIGHT SWEATS [None]
  - SCAR [None]
  - LUNG NEOPLASM [None]
  - INJURY [None]
  - CHEST PAIN [None]
  - CONTUSION [None]
  - ARTHRALGIA [None]
  - ANAEMIA POSTOPERATIVE [None]
  - PRESYNCOPE [None]
  - APPENDICECTOMY [None]
  - LOW TURNOVER OSTEOPATHY [None]
  - SACROILIITIS [None]
  - CAROTID ARTERY STENOSIS [None]
  - LACERATION [None]
  - BASAL GANGLIA INFARCTION [None]
  - THALAMIC INFARCTION [None]
  - CYSTOCELE [None]
  - COUGH [None]
  - PAIN IN EXTREMITY [None]
